FAERS Safety Report 22278781 (Version 4)
Quarter: 2023Q2

REPORT INFORMATION
  Report Type: Report from Study
  Country: US (occurrence: US)
  Receive Date: 20230503
  Receipt Date: 20230528
  Transmission Date: 20230721
  Serious: No
  Sender: FDA-Public Use
  Company Number: US-002147023-NVSC2023US099910

PATIENT
  Age: 59 Year
  Sex: Male

DRUGS (1)
  1. ENTRESTO [Suspect]
     Active Substance: SACUBITRIL\VALSARTAN
     Indication: Product used for unknown indication
     Dosage: 1 DOSAGE FORM, BID
     Route: 048
     Dates: start: 20230412

REACTIONS (4)
  - Arthralgia [Unknown]
  - Condition aggravated [Unknown]
  - Dizziness postural [Unknown]
  - Hypotension [Unknown]

NARRATIVE: CASE EVENT DATE: 20230401
